FAERS Safety Report 6212330-1 (Version None)
Quarter: 2009Q2

REPORT INFORMATION
  Report Type: 
  Country: None (occurrence: None)
  Receive Date: 20090529
  Receipt Date: 20090514
  Transmission Date: 20091009
  Serious: Yes (Other)
  Sender: FDA-Public Use
  Company Number: SPV1-2009-00955

PATIENT
  Age: 5 Year
  Sex: Male

DRUGS (6)
  1. FOSRENOL [Suspect]
     Indication: HYPERPARATHYROIDISM
  2. CINACALCET(CINACALCET) [Suspect]
     Dosage: 10 MG, 1X/DAY:QD,; 20 MG, 1X/DAY:QD,; 30 MG, 1X/DAY:QD,
  3. ALPHACALCIDOL (ALFACALCIDOL) [Concomitant]
  4. CALCIUM CARBONATE (CALCIUM CARBONATE) [Concomitant]
  5. SEVELAMER (SEVELAMER) [Concomitant]
  6. SODIUM BICARBONATE IN PLASTIC CONTAINER [Concomitant]

REACTIONS (6)
  - BLOOD CALCIUM INCREASED [None]
  - NAUSEA [None]
  - OFF LABEL USE [None]
  - PRECOCIOUS PUBERTY [None]
  - VOMITING [None]
  - WEIGHT DECREASED [None]
